FAERS Safety Report 23341239 (Version 3)
Quarter: 2024Q4

REPORT INFORMATION
  Report Type: Spontaneous
  Country: US (occurrence: US)
  Receive Date: 20231227
  Receipt Date: 20241112
  Transmission Date: 20250115
  Serious: Yes (Hospitalization, Other)
  Sender: HIKMA
  Company Number: US-HIKMA PHARMACEUTICALS USA INC.-US-H14001-23-68223

PATIENT

DRUGS (16)
  1. CYCLOPHOSPHAMIDE [Suspect]
     Active Substance: CYCLOPHOSPHAMIDE
     Dosage: NOT APPLICABLE (COMPANY^S SUSPECT PRODUCT NOT ADMINISTERED)
     Dates: start: 20230929, end: 20231001
  2. CYCLOPHOSPHAMIDE [Suspect]
     Active Substance: CYCLOPHOSPHAMIDE
     Dosage: NOT APPLICABLE (COMPANY^S SUSPECT PRODUCT NOT ADMINISTERED)
  3. CYCLOPHOSPHAMIDE [Suspect]
     Active Substance: CYCLOPHOSPHAMIDE
     Indication: B-cell type acute leukaemia
     Dosage: 250 MG/M2, CYCLE 1,3,5,7, EVERY 12 HRS X 6 DOSES, DAYS 1-3
     Route: 042
     Dates: start: 20230923
  4. CYCLOPHOSPHAMIDE [Suspect]
     Active Substance: CYCLOPHOSPHAMIDE
     Dosage: 250 MG/M2, CYCLE 1,3,5,7, EVERY 12 HRS X 6 DOSES, DAYS 1-3
     Route: 042
     Dates: start: 20230929, end: 20231001
  5. CYTARABINE [Suspect]
     Active Substance: CYTARABINE
     Indication: B-cell type acute leukaemia
     Dosage: 1 G/M2/DOSE, CYCLE 2,4,6,8, EVERY 12 HRS X4, DAYS 2,3
     Route: 042
  6. CYTARABINE [Suspect]
     Active Substance: CYTARABINE
     Dosage: 100 MG, CYCLE 1-4, DAY2, DAY 8
     Route: 065
  7. DEXAMETHASONE [Suspect]
     Active Substance: DEXAMETHASONE
     Indication: B-cell type acute leukaemia
     Dosage: 20 MG IV OR PO, CYCLE 1,3,5,7, DAYS 1-4, DAYS 11-14
     Route: 042
     Dates: start: 20230923
  8. DEXAMETHASONE [Suspect]
     Active Substance: DEXAMETHASONE
     Dosage: 20 MG IV OR PO, CYCLE 1,3,5,7, DAYS 1-4, DAYS 11-14
     Route: 065
     Dates: start: 20230929, end: 20231012
  9. DOXORUBICIN [Suspect]
     Active Substance: DOXORUBICIN
     Indication: B-cell type acute leukaemia
     Dosage: 37.5 MG/M2, CYCLE 1,3,5,7, DAY 4
     Route: 042
  10. MESNA [Suspect]
     Active Substance: MESNA
     Indication: B-cell type acute leukaemia
     Dosage: 300 MG/M2, CYCLE 1,3,5,7, DAYS 1-3
     Route: 065
  11. METHOTREXATE [Suspect]
     Active Substance: METHOTREXATE
     Dosage: 12 MG, CYCLE 1-4, DAY 2, DAY 8
     Route: 065
  12. METHOTREXATE [Suspect]
     Active Substance: METHOTREXATE
     Indication: B-cell type acute leukaemia
     Dosage: 500 MG/M2, CYCLE 2,4,6,8, DAY 1
     Route: 042
  13. METHYLPREDNISOLONE SODIUM SUCCINATE [Suspect]
     Active Substance: METHYLPREDNISOLONE SODIUM SUCCINATE
     Indication: B-cell type acute leukaemia
     Dosage: 50 MG, CYCLE 2,4,6,8, EVERY 12 HRS X 6 DOSES, DAYS 1-3
     Route: 042
  14. RITUXIMAB [Suspect]
     Active Substance: RITUXIMAB
     Indication: B-cell type acute leukaemia
     Dosage: 375 MG/M2, CYCLE 1-4, DAY 1, DAY 8
     Route: 042
  15. VINCRISTINE SULFATE [Suspect]
     Active Substance: VINCRISTINE SULFATE
     Indication: B-cell type acute leukaemia
     Dosage: 2 MG, CYCLE 1,3,5,7, DAY 1, DAY 8
     Route: 042
     Dates: start: 20230923
  16. VINCRISTINE SULFATE [Suspect]
     Active Substance: VINCRISTINE SULFATE
     Dosage: 2 MG, CYCLE 1,3,5,7, DAY 1, DAY 8
     Route: 042
     Dates: start: 20230929, end: 20231006

REACTIONS (7)
  - Fall [Recovering/Resolving]
  - Pneumonia [Recovering/Resolving]
  - Pleural effusion [Recovering/Resolving]
  - Contusion [Recovered/Resolved]
  - Tachypnoea [Unknown]
  - Dyspnoea [Unknown]
  - Condition aggravated [Unknown]

NARRATIVE: CASE EVENT DATE: 20231103
